FAERS Safety Report 4379070-5 (Version None)
Quarter: 2004Q2

REPORT INFORMATION
  Report Type: 
  Country: None (occurrence: None)
  Receive Date: 20040610
  Receipt Date: 20040602
  Transmission Date: 20050107
  Serious: Yes (Life-Threatening, Hospitalization)
  Sender: FDA-Public Use
  Company Number: 2004-04-1358

PATIENT
  Age: 50 Year
  Sex: Female

DRUGS (3)
  1. PEG-INTRON [Suspect]
     Indication: HEPATITIS C
     Dosage: 64 MCG SUBCUTANEOUS
     Route: 058
     Dates: start: 20030922, end: 20040508
  2. REBETOL [Suspect]
     Indication: HEPATITIS C
     Dosage: 400 MG* BID ORAL
     Route: 048
     Dates: start: 20030922, end: 20040508
  3. VERAPAMIL [Suspect]

REACTIONS (6)
  - ARTERIAL THROMBOSIS LIMB [None]
  - CARDIAC FAILURE CONGESTIVE [None]
  - OEDEMA PERIPHERAL [None]
  - POST PROCEDURAL COMPLICATION [None]
  - PULMONARY EMBOLISM [None]
  - SEPSIS [None]
